FAERS Safety Report 16953835 (Version 3)
Quarter: 2019Q4

REPORT INFORMATION
  Report Type: Spontaneous
  Country: AU (occurrence: AU)
  Receive Date: 20191023
  Receipt Date: 20191119
  Transmission Date: 20200122
  Serious: Yes (Death)
  Sender: FDA-Public Use
  Company Number: AU-CELGENEUS-AUS-20191007251

PATIENT
  Sex: Male

DRUGS (7)
  1. PARACETAMOL [Concomitant]
     Active Substance: ACETAMINOPHEN
     Indication: PAIN
     Dosage: 3000 MILLIGRAM
     Route: 048
     Dates: start: 20191009, end: 20191010
  2. HYDREA [Concomitant]
     Active Substance: HYDROXYUREA
     Indication: PRODUCT USED FOR UNKNOWN INDICATION
     Route: 065
  3. HYOSCINE [Concomitant]
     Active Substance: SCOPOLAMINE
     Indication: PRODUCT USED FOR UNKNOWN INDICATION
     Route: 058
     Dates: start: 20191010, end: 20191011
  4. HYDROMORPHONE [Concomitant]
     Active Substance: HYDROMORPHONE
     Indication: AGITATION
     Route: 058
     Dates: start: 20191010, end: 20191010
  5. HYDROXYUREA. [Concomitant]
     Active Substance: HYDROXYUREA
     Indication: BLAST CELL CRISIS
     Dosage: 1500 MILLIGRAM
     Route: 048
     Dates: start: 20191008, end: 20191010
  6. TRANEXAMIC ACID. [Concomitant]
     Active Substance: TRANEXAMIC ACID
     Indication: HAEMOPTYSIS
     Dosage: 3000 MILLIGRAM
     Route: 048
     Dates: start: 20191009, end: 20191010
  7. AG-221 [Suspect]
     Active Substance: ENASIDENIB
     Indication: ACUTE MYELOID LEUKAEMIA
     Dosage: 100 MILLIGRAM
     Route: 048
     Dates: start: 20190614, end: 20191009

REACTIONS (1)
  - Acute myeloid leukaemia [Fatal]
